FAERS Safety Report 9697019 (Version 12)
Quarter: 2021Q2

REPORT INFORMATION
  Report Type: Other
  Country: US (occurrence: US)
  Receive Date: 20131120
  Receipt Date: 20210421
  Transmission Date: 20210717
  Serious: Yes (Other)
  Sender: FDA-Public Use
  Company Number: US-ROCHE-1303826

PATIENT

DRUGS (4)
  1. LENALIDOMIDE [Suspect]
     Active Substance: LENALIDOMIDE
     Dosage: MAINTENANCE PHASE: 10?15MG/DAY ON DAYS 1?21 OF A 28?DAY CYCLE FOR A TOTAL OF 12 CYCLES (CREATININE C
     Route: 065
  2. RITUXIMAB. [Suspect]
     Active Substance: RITUXIMAB
     Indication: MANTLE CELL LYMPHOMA
     Dosage: INDUCTION PHASE: WEEKLY X 4 DURING CYCLE 1, THEN ONCE EVERY OTHER CYCLE, FOR A TOTAL OF 9 DOSES.
     Route: 042
  3. RITUXIMAB. [Suspect]
     Active Substance: RITUXIMAB
     Dosage: MAINTENANCE PHASE: ONCE EVERY OTHER CYCLE.
     Route: 042
  4. LENALIDOMIDE [Suspect]
     Active Substance: LENALIDOMIDE
     Indication: MANTLE CELL LYMPHOMA
     Dosage: INDUCTION PHASE: 20?25MG/DAY ON DAYS 1?21 OF A 28?DAY CYCLE FOR A TOTAL OF 12 CYCLES (CREATININE CLE
     Route: 065

REACTIONS (16)
  - Aspartate aminotransferase increased [Unknown]
  - Pneumonia [Recovered/Resolved]
  - Myalgia [Unknown]
  - Thrombocytopenia [Unknown]
  - Fatigue [Unknown]
  - Malignant melanoma in situ [Unknown]
  - Febrile neutropenia [Unknown]
  - Blood alkaline phosphatase increased [Unknown]
  - Neutropenia [Unknown]
  - Urinary tract infection [Unknown]
  - Anaemia [Unknown]
  - Rash [Unknown]
  - Hyperglycaemia [Unknown]
  - Arthralgia [Unknown]
  - Alanine aminotransferase increased [Unknown]
  - Cellulitis [Unknown]
